FAERS Safety Report 23396195 (Version 1)
Quarter: 2024Q1

REPORT INFORMATION
  Report Type: Spontaneous
  Country: US (occurrence: US)
  Receive Date: 20240112
  Receipt Date: 20240112
  Transmission Date: 20240410
  Serious: No
  Sender: FDA-Public Use
  Company Number: US-CIPLA LTD.-2023US06610

PATIENT

DRUGS (7)
  1. ARFORMOTEROL [Suspect]
     Active Substance: ARFORMOTEROL
     Indication: Dyspnoea
     Dosage: 15 MICROGRAM, BID (STRENGTH: 15 MICROGRAM/2ML)
     Dates: start: 2010, end: 202309
  2. ARFORMOTEROL [Suspect]
     Active Substance: ARFORMOTEROL
     Indication: Chronic obstructive pulmonary disease
  3. AMLODIPINE [Concomitant]
     Active Substance: AMLODIPINE BESYLATE
     Indication: Blood pressure measurement
     Dosage: 10 MILLIGRAM, QD
     Route: 065
  4. PRAVASTATIN [Concomitant]
     Active Substance: PRAVASTATIN
     Indication: Blood cholesterol
     Dosage: 40 MILLIGRAM, QD
     Route: 065
  5. PROBIOTICS [BIFIDOBACTERIUM LONGUM;LACTOBACILLUS ACIDOPHILUS;LACTOBACI [Concomitant]
     Indication: Probiotic therapy
     Dosage: 1 DOSAGE FORM, QD
     Route: 065
  6. LEVALBUTEROL HYDROCHLORIDE [Concomitant]
     Active Substance: LEVALBUTEROL HYDROCHLORIDE
     Indication: Product used for unknown indication
     Dosage: UNK (45 MCG / ONCE IN TWICE A WEEK)
     Route: 065
     Dates: start: 202309
  7. BUDESONIDE [Concomitant]
     Active Substance: BUDESONIDE
     Indication: Product used for unknown indication
     Dosage: UNK
     Route: 065

REACTIONS (7)
  - Condition aggravated [Recovering/Resolving]
  - Expired product administered [Unknown]
  - Heart rate increased [Recovering/Resolving]
  - Palpitations [Recovering/Resolving]
  - Nervousness [Not Recovered/Not Resolved]
  - Dyspnoea [Recovering/Resolving]
  - Tremor [Recovering/Resolving]

NARRATIVE: CASE EVENT DATE: 20210101
